FAERS Safety Report 25827215 (Version 1)
Quarter: 2025Q3

REPORT INFORMATION
  Report Type: Spontaneous
  Country: US (occurrence: US)
  Receive Date: 20250920
  Receipt Date: 20250920
  Transmission Date: 20251021
  Serious: Yes (Hospitalization)
  Sender: NOVARTIS
  Company Number: US-002147023-NVSC2025US146266

PATIENT
  Age: 62 Year
  Sex: Male

DRUGS (1)
  1. ELTROMBOPAG [Suspect]
     Active Substance: ELTROMBOPAG
     Indication: Pancytopenia
     Route: 065

REACTIONS (8)
  - Pulmonary embolism [Unknown]
  - Haemodynamic instability [Unknown]
  - Ischaemic stroke [Unknown]
  - Dyspnoea [Unknown]
  - Cerebral artery occlusion [Unknown]
  - Hemiplegia [Unknown]
  - Aphasia [Recovering/Resolving]
  - Subarachnoid haemorrhage [Unknown]
